FAERS Safety Report 15159899 (Version 2)
Quarter: 2018Q3

REPORT INFORMATION
  Report Type: Spontaneous
  Country: JP (occurrence: JP)
  Receive Date: 20180718
  Receipt Date: 20180829
  Transmission Date: 20181010
  Serious: Yes (Other)
  Sender: FDA-Public Use
  Company Number: JP-SA-2018SA113523

PATIENT
  Age: 75 Year
  Sex: Female
  Weight: 48.3 kg

DRUGS (10)
  1. ZALTRAP [Suspect]
     Active Substance: ZIV-AFLIBERCEPT
     Indication: RECTAL CANCER RECURRENT
     Dosage: 190 MG, QOW
     Route: 041
     Dates: start: 20170904, end: 20171016
  2. ZALTRAP [Suspect]
     Active Substance: ZIV-AFLIBERCEPT
     Dosage: UNK
     Route: 041
     Dates: start: 2016
  3. ZALTRAP [Suspect]
     Active Substance: ZIV-AFLIBERCEPT
     Dosage: 130 MG, QOW
     Route: 041
     Dates: start: 20171204, end: 20171225
  4. FLUOROURACIL. [Suspect]
     Active Substance: FLUOROURACIL
     Dosage: 3400 MG, QOW
     Route: 042
     Dates: start: 20170904, end: 20171225
  5. LEVOFOLINATE CALCIUM [Suspect]
     Active Substance: LEVOLEUCOVORIN CALCIUM
     Indication: RECTAL CANCER RECURRENT
     Dosage: 280 MG, QOW
     Route: 041
     Dates: start: 20170904, end: 20171225
  6. TOPOTECIN [Suspect]
     Active Substance: IRINOTECAN HYDROCHLORIDE
     Indication: RECTAL CANCER RECURRENT
     Dosage: 210 MG, QOW
     Route: 041
     Dates: start: 20170904, end: 20171225
  7. DEXART [Concomitant]
     Active Substance: DEXAMETHASONE SODIUM PHOSPHATE
     Indication: PREMEDICATION
     Dosage: 6.6 MG, EVERY ADMINISTRATION OF AFLIBERCEPT
     Route: 065
  8. FLUOROURACIL. [Suspect]
     Active Substance: FLUOROURACIL
     Indication: RECTAL CANCER RECURRENT
     Dosage: 550 MG, QOW
     Route: 042
     Dates: start: 20170904, end: 20171225
  9. ALOXI [Concomitant]
     Active Substance: PALONOSETRON HYDROCHLORIDE
     Indication: PREMEDICATION
     Dosage: 0.75 MG, EVERY ADMINISTRATION OF AFLIBERCEPT
     Route: 042
  10. RESTAMIN KOWA [Concomitant]
     Indication: PREMEDICATION
     Dosage: 50 MG, ONCE, AT THE 1ST DOSE OF AFLIBERCEPT
     Route: 065

REACTIONS (4)
  - Pharyngeal ulceration [Recovered/Resolved]
  - Hypertension [Recovering/Resolving]
  - Palpitations [Recovering/Resolving]
  - Neutrophil count decreased [Recovered/Resolved]

NARRATIVE: CASE EVENT DATE: 20171030
